FAERS Safety Report 13413605 (Version 2)
Quarter: 2017Q4

REPORT INFORMATION
  Report Type: Spontaneous
  Country: US (occurrence: US)
  Receive Date: 20170406
  Receipt Date: 20171123
  Transmission Date: 20180320
  Serious: No
  Sender: FDA-Public Use
  Company Number: US-JNJFOC-20170318210

PATIENT
  Sex: Male

DRUGS (27)
  1. RISPERDAL [Suspect]
     Active Substance: RISPERIDONE
     Indication: SUBSTANCE-INDUCED PSYCHOTIC DISORDER
     Route: 048
     Dates: start: 20090423
  2. RISPERDAL [Suspect]
     Active Substance: RISPERIDONE
     Indication: BIPOLAR DISORDER
     Route: 048
     Dates: start: 20090512
  3. RISPERIDONE. [Suspect]
     Active Substance: RISPERIDONE
     Indication: SCHIZOPHRENIA
     Route: 048
     Dates: start: 20090513, end: 20090517
  4. RISPERDAL [Suspect]
     Active Substance: RISPERIDONE
     Indication: SUBSTANCE-INDUCED PSYCHOTIC DISORDER
     Route: 048
     Dates: start: 20050729
  5. RISPERDAL [Suspect]
     Active Substance: RISPERIDONE
     Indication: SCHIZOPHRENIA
     Route: 048
     Dates: start: 20090523, end: 20090820
  6. RISPERDAL [Suspect]
     Active Substance: RISPERIDONE
     Indication: SCHIZOPHRENIA
     Route: 048
     Dates: start: 20050118
  7. RISPERIDONE. [Suspect]
     Active Substance: RISPERIDONE
     Indication: SUBSTANCE-INDUCED PSYCHOTIC DISORDER
     Route: 048
     Dates: start: 20090513, end: 20090517
  8. RISPERDAL [Suspect]
     Active Substance: RISPERIDONE
     Indication: SUBSTANCE-INDUCED PSYCHOTIC DISORDER
     Route: 048
     Dates: start: 20050707
  9. RISPERDAL [Suspect]
     Active Substance: RISPERIDONE
     Indication: SUBSTANCE-INDUCED PSYCHOTIC DISORDER
     Route: 048
     Dates: start: 20090512
  10. RISPERDAL [Suspect]
     Active Substance: RISPERIDONE
     Indication: SUBSTANCE-INDUCED PSYCHOTIC DISORDER
     Route: 048
     Dates: start: 20090523, end: 20090820
  11. RISPERDAL [Suspect]
     Active Substance: RISPERIDONE
     Indication: SCHIZOPHRENIA
     Route: 048
     Dates: start: 20090423
  12. RISPERDAL [Suspect]
     Active Substance: RISPERIDONE
     Indication: BIPOLAR DISORDER
     Route: 048
     Dates: start: 20050729
  13. RISPERDAL [Suspect]
     Active Substance: RISPERIDONE
     Indication: SUBSTANCE-INDUCED PSYCHOTIC DISORDER
     Route: 048
     Dates: start: 20050118
  14. RISPERDAL [Suspect]
     Active Substance: RISPERIDONE
     Indication: BIPOLAR DISORDER
     Route: 048
     Dates: start: 20050707
  15. RISPERIDONE. [Suspect]
     Active Substance: RISPERIDONE
     Indication: BIPOLAR DISORDER
     Route: 048
     Dates: start: 20090513, end: 20090517
  16. RISPERDAL [Suspect]
     Active Substance: RISPERIDONE
     Indication: SUBSTANCE-INDUCED PSYCHOTIC DISORDER
     Route: 048
     Dates: start: 20041216
  17. RISPERDAL [Suspect]
     Active Substance: RISPERIDONE
     Indication: SCHIZOPHRENIA
     Route: 048
     Dates: start: 20050729
  18. RISPERDAL [Suspect]
     Active Substance: RISPERIDONE
     Indication: SCHIZOPHRENIA
     Route: 048
     Dates: end: 20090517
  19. RISPERDAL [Suspect]
     Active Substance: RISPERIDONE
     Indication: SCHIZOPHRENIA
     Route: 048
     Dates: start: 20041216
  20. RISPERDAL [Suspect]
     Active Substance: RISPERIDONE
     Indication: BIPOLAR DISORDER
     Route: 048
     Dates: end: 20090517
  21. RISPERDAL [Suspect]
     Active Substance: RISPERIDONE
     Indication: SCHIZOPHRENIA
     Route: 048
     Dates: start: 20050707
  22. RISPERDAL [Suspect]
     Active Substance: RISPERIDONE
     Indication: SCHIZOPHRENIA
     Route: 048
     Dates: start: 20090512
  23. RISPERDAL [Suspect]
     Active Substance: RISPERIDONE
     Indication: BIPOLAR DISORDER
     Route: 048
     Dates: start: 20090523, end: 20090820
  24. RISPERDAL [Suspect]
     Active Substance: RISPERIDONE
     Indication: BIPOLAR DISORDER
     Route: 048
     Dates: start: 20050118
  25. RISPERDAL [Suspect]
     Active Substance: RISPERIDONE
     Indication: BIPOLAR DISORDER
     Route: 048
     Dates: start: 20041216
  26. RISPERDAL [Suspect]
     Active Substance: RISPERIDONE
     Indication: SUBSTANCE-INDUCED PSYCHOTIC DISORDER
     Route: 048
     Dates: end: 20090517
  27. RISPERDAL [Suspect]
     Active Substance: RISPERIDONE
     Indication: BIPOLAR DISORDER
     Route: 048
     Dates: start: 20090423

REACTIONS (2)
  - Gynaecomastia [Unknown]
  - Emotional disorder [Unknown]
